FAERS Safety Report 4564092-1 (Version None)
Quarter: 2005Q1

REPORT INFORMATION
  Report Type: 
  Country: None (occurrence: None)
  Receive Date: 20050126
  Receipt Date: 20050114
  Transmission Date: 20050727
  Serious: Yes (Life-Threatening, Hospitalization)
  Sender: FDA-Public Use
  Company Number: 2005-00180

PATIENT
  Age: 6 Year
  Sex: Male

DRUGS (1)
  1. ACETAMINPHEN /CODEINE  PHOSPHATE (WATSON LABORATORIES)(CODEINE PHOSPHA [Suspect]
     Dosage: DAILY FOR SEVRAL MONTHS, ORAL
     Route: 048

REACTIONS (1)
  - TOXIC EPIDERMAL NECROLYSIS [None]
